FAERS Safety Report 5690382-5 (Version None)
Quarter: 2008Q1

REPORT INFORMATION
  Report Type: 
  Country: None (occurrence: None)
  Receive Date: 20080331
  Receipt Date: 20080331
  Transmission Date: 20080703
  Serious: No
  Sender: FDA-Public Use
  Company Number: None

PATIENT
  Age: 71 Year
  Sex: Female
  Weight: 79.3795 kg

DRUGS (9)
  1. CRESTOR [Suspect]
     Indication: BLOOD CHOLESTEROL INCREASED
     Dosage: 1/DAY PO
     Route: 048
  2. FORTAMET [Suspect]
     Indication: TYPE 2 DIABETES MELLITUS
     Dosage: 1000 MG. 1/DAY PO
     Route: 048
  3. AVAPRO [Concomitant]
  4. GLIPIZIDE [Concomitant]
  5. KERALAC OINTMENT [Concomitant]
  6. METOPROLOL TARTRATE [Concomitant]
  7. OMEPRAZOLE [Concomitant]
  8. ACTOS [Concomitant]
  9. CRESTOR [Concomitant]

REACTIONS (3)
  - ASTHENIA [None]
  - MUSCULOSKELETAL PAIN [None]
  - PAIN IN EXTREMITY [None]
